FAERS Safety Report 18264088 (Version 1)
Quarter: 2020Q3

REPORT INFORMATION
  Report Type: Spontaneous
  Country: US (occurrence: US)
  Receive Date: 20200914
  Receipt Date: 20200914
  Transmission Date: 20201103
  Serious: No
  Sender: FDA-Public Use
  Company Number: US-TEVA-2020-US-1827583

PATIENT
  Sex: Female

DRUGS (1)
  1. LETROZOLE TEVA [Suspect]
     Active Substance: LETROZOLE
     Route: 065

REACTIONS (4)
  - Arthralgia [Unknown]
  - Myalgia [Unknown]
  - Alopecia [Unknown]
  - Adverse event [Unknown]
